FAERS Safety Report 9165841 (Version 1)
Quarter: 2013Q1

REPORT INFORMATION
  Report Type: Spontaneous
  Country: US (occurrence: None)
  Receive Date: 20130314
  Receipt Date: 20130314
  Transmission Date: 20140127
  Serious: Yes (Other)
  Sender: FDA-Public Use
  Company Number: None

PATIENT
  Age: 74 Year
  Sex: Male
  Weight: 73.94 kg

DRUGS (12)
  1. VINCRISTINE [Suspect]
     Indication: DIFFUSE LARGE B-CELL LYMPHOMA
     Dosage: 2MG 21 DAYS IV
     Route: 042
     Dates: start: 20121206
  2. RITUXAN [Concomitant]
  3. ALOXI [Concomitant]
  4. BENADRYL [Concomitant]
  5. EMEND [Concomitant]
  6. DECADRON [Concomitant]
  7. TYLENOL [Concomitant]
  8. NEULASTA [Concomitant]
  9. ZOFRAN [Concomitant]
  10. COMPAZINE [Concomitant]
  11. CYTOXAN [Concomitant]
  12. ADRIAMYCIN [Concomitant]

REACTIONS (2)
  - Dysphonia [None]
  - Dysphagia [None]
